FAERS Safety Report 9104884 (Version 1)
Quarter: 2013Q1

REPORT INFORMATION
  Report Type: Spontaneous
  Country: US (occurrence: US)
  Receive Date: 20130220
  Receipt Date: 20130220
  Transmission Date: 20140127
  Serious: No
  Sender: FDA-Public Use
  Company Number: US-009507513-1302USA007471

PATIENT
  Sex: Male

DRUGS (3)
  1. PROVENTIL [Suspect]
     Indication: DYSPNOEA
     Dosage: 90 MICROGRAM, EVERY MORNING AND AT NIGHT, ORAL INHALATION
     Dates: start: 201202
  2. ADVAIR [Concomitant]
  3. SPIRIVA [Concomitant]

REACTIONS (3)
  - Cough [Not Recovered/Not Resolved]
  - Drug dose omission [Unknown]
  - Product quality issue [Unknown]
